FAERS Safety Report 18218125 (Version 1)
Quarter: 2020Q3

REPORT INFORMATION
  Report Type: Spontaneous
  Country: FR (occurrence: FR)
  Receive Date: 20200901
  Receipt Date: 20200901
  Transmission Date: 20201103
  Serious: Yes (Hospitalization)
  Sender: FDA-Public Use
  Company Number: FR-TEVA-2020-FR-1821270

PATIENT
  Age: 30 Year
  Sex: Female

DRUGS (3)
  1. IBUPROFENE [Suspect]
     Active Substance: IBUPROFEN
     Indication: ODYNOPHAGIA
     Dosage: 600 MILLIGRAM
     Route: 048
     Dates: start: 20200703, end: 20200703
  2. PARACETAMOL [Concomitant]
     Active Substance: ACETAMINOPHEN
     Indication: ODYNOPHAGIA
     Route: 048
  3. AMOXICILLINE [Concomitant]
     Active Substance: AMOXICILLIN

REACTIONS (1)
  - Peritonsillar abscess [Recovering/Resolving]

NARRATIVE: CASE EVENT DATE: 20200705
